FAERS Safety Report 8854686 (Version 2)
Quarter: 2014Q2

REPORT INFORMATION
  Report Type: Spontaneous
  Country: FR (occurrence: FR)
  Receive Date: 20121023
  Receipt Date: 20131018
  Transmission Date: 20141212
  Serious: Yes (Hospitalization)
  Sender: FDA-Public Use
  Company Number: FR-PFIZER INC-2012262121

PATIENT
  Age: 55 Year
  Sex: Male

DRUGS (11)
  1. EUPANTOL [Suspect]
     Indication: SEPTIC SHOCK
     Dosage: UNK
     Route: 042
     Dates: start: 20120826, end: 20120924
  2. VANCOMYCINE [Suspect]
     Indication: SEPTIC SHOCK
     Dosage: UNK
     Route: 042
     Dates: start: 20120901, end: 20120904
  3. VANCOMYCINE [Suspect]
     Dosage: UNK
     Route: 042
     Dates: start: 20120907, end: 20120920
  4. VANCOMYCINE [Suspect]
     Dosage: UNK
     Route: 042
     Dates: start: 20120926, end: 20120926
  5. FORTUM [Suspect]
     Indication: SEPTIC SHOCK
     Dosage: UNK
     Route: 042
     Dates: start: 20120912, end: 20120924
  6. CORDARONE [Concomitant]
  7. ASPIRINE [Concomitant]
  8. TAHOR [Concomitant]
  9. LOVENOX [Concomitant]
  10. DEROXAT [Concomitant]
  11. CLAFORAN [Concomitant]
     Dosage: UNK
     Dates: start: 20120903, end: 20120912

REACTIONS (11)
  - Eosinophilia [Recovering/Resolving]
  - Blood lactate dehydrogenase increased [Recovering/Resolving]
  - Pharyngitis [Recovered/Resolved]
  - Dysphagia [Recovered/Resolved]
  - Drug reaction with eosinophilia and systemic symptoms [Recovering/Resolving]
  - Rash [Recovering/Resolving]
  - Pyrexia [Recovering/Resolving]
  - Transaminases increased [Recovering/Resolving]
  - Gamma-glutamyltransferase increased [Recovering/Resolving]
  - Face oedema [Recovering/Resolving]
  - Lymphadenopathy [Recovering/Resolving]
